FAERS Safety Report 25841994 (Version 1)
Quarter: 2025Q3

REPORT INFORMATION
  Report Type: Spontaneous
  Country: GB (occurrence: GB)
  Receive Date: 20250924
  Receipt Date: 20250924
  Transmission Date: 20251020
  Serious: Yes (Other)
  Sender: ELI LILLY AND COMPANY
  Company Number: GB-MHRA-TPP26297638C7575205YC1757090153227

PATIENT
  Age: 68 Year
  Sex: Female
  Weight: 92 kg

DRUGS (17)
  1. MOUNJARO [Suspect]
     Active Substance: TIRZEPATIDE
     Indication: Product used for unknown indication
     Route: 065
     Dates: start: 20250616, end: 20250714
  2. CODEINE PHOSPHATE [Concomitant]
     Active Substance: CODEINE PHOSPHATE
     Indication: Product used for unknown indication
     Dosage: UNK UNK, QID (TAKE ONE OR TWO TABLETS UP TO 4 TIMES/DAY)
     Dates: start: 20250609, end: 20250616
  3. BETAMETHASONE DIPROPIONATE [Concomitant]
     Active Substance: BETAMETHASONE DIPROPIONATE
     Indication: Product used for unknown indication
     Dosage: UNK, BID (APPLY 1-2 TIMES/DAY )
     Dates: start: 20250829
  4. FLURANDRENOLIDE [Concomitant]
     Active Substance: FLURANDRENOLIDE
     Indication: Product used for unknown indication
     Dosage: UNK, EACH EVENING (APPLY AT NIGHT)
     Dates: start: 20250620, end: 20250720
  5. CLOBETASOL PROPIONATE [Concomitant]
     Active Substance: CLOBETASOL PROPIONATE
     Indication: Product used for unknown indication
     Dosage: UNK, BID (APPLY 1-2 TIMES/DAY)
     Dates: start: 20250821
  6. BETAMETHASONE DIPROPIONATE [Concomitant]
     Active Substance: BETAMETHASONE DIPROPIONATE
     Indication: Product used for unknown indication
     Dosage: UNK, BID (APPLY 1-2 TIMES/DAY)
     Dates: start: 20250730, end: 20250813
  7. BETAMETHASONE DIPROPIONATE\CALCIPOTRIENE [Concomitant]
     Active Substance: BETAMETHASONE DIPROPIONATE\CALCIPOTRIENE
     Indication: Product used for unknown indication
     Dosage: UNK UNK, DAILY(APPLY ONCE DAILY)
     Dates: start: 20250829
  8. AMLODIPINE [Concomitant]
     Active Substance: AMLODIPINE BESYLATE
     Indication: Product used for unknown indication
     Dosage: UNK, DAILY(TAKE ONE DAILY)
     Dates: start: 20250218
  9. BENZALKONIUM CHLORIDE;CHLORHEXIDINE HYDROCHLO [Concomitant]
     Indication: Product used for unknown indication
     Dates: start: 20250218
  10. DOCUSATE SODIUM [Concomitant]
     Active Substance: DOCUSATE SODIUM
     Indication: Product used for unknown indication
     Dosage: UNK, QID (TAKE ONE 4 TIMES/DAY)
     Dates: start: 20250218
  11. ESOMEPRAZOLE [Concomitant]
     Active Substance: ESOMEPRAZOLE
     Indication: Product used for unknown indication
     Dosage: UNK, DAILY
     Dates: start: 20250218
  12. LEVOTHYROXINE [Concomitant]
     Active Substance: LEVOTHYROXINE
     Indication: Product used for unknown indication
     Dosage: UNK, EACH MORNING
     Dates: start: 20250218
  13. NORTRIPTYLINE [Concomitant]
     Active Substance: NORTRIPTYLINE
     Indication: Product used for unknown indication
     Dosage: UNK, EACH EVENING (TAKE ONE TABLET AT NIGHT)
     Dates: start: 20250218
  14. ACETAMINOPHEN [Concomitant]
     Active Substance: ACETAMINOPHEN
     Indication: Product used for unknown indication
     Dosage: UNK, QID (TWO TO BE TAKEN FOUR TIMES A DAY AS REQUIRED )
     Dates: start: 20250218
  15. CHLORTETRACYCLINE HYDROCHLORIDE;CLOBETASONE B [Concomitant]
     Indication: Product used for unknown indication
     Dosage: UNK UNK, 2/W
     Dates: start: 20250218
  16. VENLAFAXINE [Concomitant]
     Active Substance: VENLAFAXINE HYDROCHLORIDE
     Indication: Product used for unknown indication
     Dosage: UNK, DAILY (TAKE ONE DAILY)
     Dates: start: 20250218
  17. EZETIMIBE [Concomitant]
     Active Substance: EZETIMIBE
     Indication: Product used for unknown indication
     Dosage: UNK, DAILY(TAKE ONE DAILY)
     Dates: start: 20250501

REACTIONS (2)
  - Palmoplantar keratoderma [Not Recovered/Not Resolved]
  - Guttate psoriasis [Unknown]
